FAERS Safety Report 24176352 (Version 1)
Quarter: 2024Q3

REPORT INFORMATION
  Report Type: Spontaneous
  Country: TR (occurrence: TR)
  Receive Date: 20240806
  Receipt Date: 20240806
  Transmission Date: 20241017
  Serious: Yes (Other)
  Sender: ROCHE
  Company Number: None

PATIENT
  Age: 35 Year
  Sex: Male

DRUGS (7)
  1. MYCOPHENOLATE MOFETIL [Suspect]
     Active Substance: MYCOPHENOLATE MOFETIL
     Indication: Prophylaxis against transplant rejection
     Route: 065
  2. TACROLIMUS [Suspect]
     Active Substance: TACROLIMUS
     Indication: Prophylaxis against transplant rejection
     Dosage: 1.5 + 1 MG
     Route: 065
  3. TACROLIMUS [Suspect]
     Active Substance: TACROLIMUS
     Dosage: 0.5 + 0.5 MG
     Route: 065
  4. PREDNISOLONE [Suspect]
     Active Substance: PREDNISOLONE
     Indication: Prophylaxis against transplant rejection
     Dosage: 1*5MG
     Route: 065
     Dates: start: 2022
  5. VINBLASTINE [Concomitant]
     Active Substance: VINBLASTINE
  6. DACARBAZINE [Concomitant]
     Active Substance: DACARBAZINE
  7. BRENTUXIMAB [Concomitant]
     Active Substance: BRENTUXIMAB

REACTIONS (3)
  - Hodgkin^s disease nodular sclerosis stage IV [Unknown]
  - COVID-19 [Unknown]
  - Cytomegalovirus infection [Unknown]
